FAERS Safety Report 11078809 (Version 2)
Quarter: 2015Q2

REPORT INFORMATION
  Report Type: Spontaneous
  Country: JP (occurrence: JP)
  Receive Date: 20150430
  Receipt Date: 20150506
  Transmission Date: 20150821
  Serious: Yes (Hospitalization)
  Sender: FDA-Public Use
  Company Number: JP-MUNDIPHARMA DS AND PHARMACOVIGILANCE-GBR-2015-0027317

PATIENT
  Sex: Male

DRUGS (1)
  1. NORSPAN [Suspect]
     Active Substance: BUPRENORPHINE
     Indication: LUMBAR SPINAL STENOSIS
     Dosage: 5 MCG, Q1H
     Route: 062
     Dates: start: 20150318, end: 20150402

REACTIONS (4)
  - Road traffic accident [Recovered/Resolved]
  - Dizziness [Recovered/Resolved]
  - Intracranial haematoma [Recovered/Resolved]
  - Brain contusion [Recovered/Resolved]

NARRATIVE: CASE EVENT DATE: 201504
